FAERS Safety Report 5069901-8 (Version None)
Quarter: 2006Q3

REPORT INFORMATION
  Report Type: 
  Country: None (occurrence: None)
  Receive Date: 20060731
  Receipt Date: 20060719
  Transmission Date: 20061208
  Serious: Yes (Other)
  Sender: FDA-Public Use
  Company Number: 2006091187

PATIENT
  Age: 73 Year
  Sex: Male

DRUGS (6)
  1. LIPITOR [Suspect]
     Indication: HYPERLIPIDAEMIA
     Dosage: 10 MG (DAILY), ORAL
     Route: 048
     Dates: start: 20041125, end: 20060615
  2. KETAS              (IBUDILAST) [Suspect]
     Indication: CEREBRAL INFARCTION
     Dosage: 30 MG (DAILY), ORAL
     Route: 048
     Dates: start: 20040615, end: 20060615
  3. VALSARTAN [Suspect]
     Indication: HYPERTENSION
     Dosage: 80 MG (DAILY), ORAL
     Route: 048
     Dates: start: 20040622, end: 20060615
  4. METFORMIN HCL [Suspect]
     Indication: DIABETES MELLITUS
     Dosage: 500 MG (DAILY), ORAL
     Route: 048
     Dates: start: 20041124, end: 20060616
  5. BUFFERIN [Concomitant]
  6. FAMOTIDINE [Concomitant]

REACTIONS (13)
  - CONJUNCTIVAL HYPERAEMIA [None]
  - ENANTHEMA [None]
  - EYELID OEDEMA [None]
  - FEAR [None]
  - GENERALISED ERYTHEMA [None]
  - LYMPHADENOPATHY [None]
  - PRURITUS [None]
  - PYREXIA [None]
  - RASH GENERALISED [None]
  - RASH PAPULAR [None]
  - RASH PUSTULAR [None]
  - STOMATITIS [None]
  - SWELLING FACE [None]
